FAERS Safety Report 11469680 (Version 2)
Quarter: 2015Q3

REPORT INFORMATION
  Report Type: Spontaneous
  Country: US (occurrence: US)
  Receive Date: 20150903
  Receipt Date: 20150903
  Transmission Date: 20151125
  Serious: No
  Sender: FDA-Public Use
  Company Number: US-ELI_LILLY_AND_COMPANY-US201108001118

PATIENT
  Sex: Female

DRUGS (1)
  1. CYMBALTA [Suspect]
     Active Substance: DULOXETINE HYDROCHLORIDE

REACTIONS (7)
  - Fibromyalgia [Unknown]
  - Back pain [Unknown]
  - Anxiety [Unknown]
  - Arthralgia [Unknown]
  - Depression [Unknown]
  - Pain [Unknown]
  - Pain in extremity [Unknown]
